FAERS Safety Report 25985908 (Version 2)
Quarter: 2025Q4

REPORT INFORMATION
  Report Type: Spontaneous
  Country: EU (occurrence: EU)
  Receive Date: 20251101
  Receipt Date: 20251119
  Transmission Date: 20260117
  Serious: Yes (Hospitalization)
  Sender: TEVA
  Company Number: None

PATIENT
  Age: 49 Year
  Sex: Male

DRUGS (3)
  1. FLUCONAZOLE [Suspect]
     Active Substance: FLUCONAZOLE
     Indication: Skin candida
     Dosage: 1 WEEKLY; FLUCONAZOLE (2432A)
     Route: 048
     Dates: start: 20250829
  2. IBUPROFEN [Suspect]
     Active Substance: IBUPROFEN
     Indication: Muscle rupture
     Dosage: 1 TABLET EVERY 8 HOURS; IBUPROFEN (1769A)
     Route: 048
     Dates: start: 20250622
  3. KETOCONAZOLE [Concomitant]
     Active Substance: KETOCONAZOLE
     Indication: Skin candida
     Dosage: 1 APPLICATION EVERY 12 HOURS; 1 TUBE OF 30 G
     Route: 061
     Dates: start: 20250829

REACTIONS (4)
  - Henoch-Schonlein purpura [Recovering/Resolving]
  - Acute kidney injury [Recovering/Resolving]
  - IgA nephropathy [Recovering/Resolving]
  - Cutaneous vasculitis [Recovering/Resolving]

NARRATIVE: CASE EVENT DATE: 20250829
